FAERS Safety Report 26099975 (Version 1)
Quarter: 2025Q4

REPORT INFORMATION
  Report Type: Report from Study
  Country: AR (occurrence: AR)
  Receive Date: 20251128
  Receipt Date: 20251128
  Transmission Date: 20260117
  Serious: Yes (Other)
  Sender: EMD SERONO INC
  Company Number: AR-Merck Healthcare KGaA-2024046075

PATIENT
  Age: 6 Year
  Sex: Male

DRUGS (1)
  1. SAIZEN [Suspect]
     Active Substance: SOMATROPIN
     Indication: Chronic kidney disease
     Dates: start: 20230106

REACTIONS (3)
  - Coeliac disease [Unknown]
  - Autism spectrum disorder [Unknown]
  - Renal failure [Not Recovered/Not Resolved]

NARRATIVE: CASE EVENT DATE: 20240505
